FAERS Safety Report 9787050 (Version 1)
Quarter: 2013Q4

REPORT INFORMATION
  Report Type: Spontaneous
  Country: US (occurrence: US)
  Receive Date: 20131227
  Receipt Date: 20131227
  Transmission Date: 20140711
  Serious: Yes (Hospitalization)
  Sender: FDA-Public Use
  Company Number: US-SA-2013SA133686

PATIENT
  Sex: 0

DRUGS (1)
  1. RENVELA [Suspect]
     Indication: PRODUCT USED FOR UNKNOWN INDICATION
     Dosage: 2 WITH MEALS AND 2 WITH SNACKS
     Route: 065

REACTIONS (2)
  - Gastric ulcer [Not Recovered/Not Resolved]
  - Gastric haemorrhage [Not Recovered/Not Resolved]
